FAERS Safety Report 17635827 (Version 1)
Quarter: 2020Q2

REPORT INFORMATION
  Report Type: Spontaneous
  Country: DE (occurrence: FR)
  Receive Date: 20200406
  Receipt Date: 20200406
  Transmission Date: 20200713
  Serious: Yes (Hospitalization)
  Sender: FDA-Public Use
  Company Number: FR-MERZ PHARMACEUTICALS GMBH-15MRZ-00104

PATIENT
  Age: 70 Year
  Sex: Female

DRUGS (12)
  1. LASILIX [Concomitant]
     Active Substance: FUROSEMIDE
  2. COUMADINE [Concomitant]
     Active Substance: WARFARIN SODIUM
     Dosage: 4MG
  3. LEVOTHYROX [Concomitant]
     Active Substance: LEVOTHYROXINE
  4. INIPOMP [Concomitant]
     Active Substance: PANTOPRAZOLE SODIUM
  5. TANGANIL [Concomitant]
     Active Substance: ACETYLLEUCINE
  6. DIOSMIN [Concomitant]
     Active Substance: DIOSMIN
  7. INNOVAIR [Concomitant]
     Active Substance: BECLOMETHASONE DIPROPIONATE\FORMOTEROL
  8. LAMALINE SUPPOSITORY [Concomitant]
  9. IMOVANE [Concomitant]
     Active Substance: ZOPICLONE
  10. MOVICOL [Concomitant]
     Active Substance: POLYETHYLENE GLYCOL 3350\POTASSIUM CHLORIDE\SODIUM BICARBONATE\SODIUM CHLORIDE
  11. ASCLERA [Suspect]
     Active Substance: POLIDOCANOL
     Indication: VARICOSE VEIN
     Dosage: 2ML MILLILITERS SEPERATE DOSAGES:1
     Route: 042
     Dates: start: 20150129, end: 20150129
  12. TAHOR [Concomitant]
     Active Substance: ATORVASTATIN CALCIUM

REACTIONS (6)
  - Vomiting [Recovering/Resolving]
  - Headache [Recovering/Resolving]
  - Phonophobia [Recovering/Resolving]
  - Nausea [Recovering/Resolving]
  - Photophobia [Recovering/Resolving]
  - Hypertension [Recovering/Resolving]
